FAERS Safety Report 22288205 (Version 1)
Quarter: 2023Q2

REPORT INFORMATION
  Report Type: Spontaneous
  Country: CA (occurrence: None)
  Receive Date: 20230505
  Receipt Date: 20230505
  Transmission Date: 20230721
  Serious: Yes (Other)
  Sender: FDA-Public Use
  Company Number: 2023A102905

PATIENT
  Age: 49 Year
  Sex: Female
  Weight: 59 kg

DRUGS (1)
  1. FASLODEX [Suspect]
     Active Substance: FULVESTRANT
     Indication: Breast cancer
     Route: 030

REACTIONS (2)
  - Blood oestrogen increased [Recovered/Resolved]
  - Laboratory test interference [Recovered/Resolved]
